FAERS Safety Report 5025644-8 (Version None)
Quarter: 2006Q2

REPORT INFORMATION
  Report Type: 
  Country: None (occurrence: None)
  Receive Date: 20060614
  Receipt Date: 20060202
  Transmission Date: 20061013
  Serious: Yes (Hospitalization, Other)
  Sender: FDA-Public Use
  Company Number: PHEH2006US01695

PATIENT
  Age: 91 Year
  Sex: Male

DRUGS (5)
  1. ZOMETA [Suspect]
     Indication: PROSTATE CANCER METASTATIC
     Dosage: 4 MG MONTHLY
     Dates: start: 20040201, end: 20051223
  2. PREDNISONE [Concomitant]
     Dates: start: 20050201, end: 20050401
  3. HYDROCORTISON                           /CZE/ [Concomitant]
     Dosage: 15MG AM, 10MG PM
  4. TAXOTERE [Concomitant]
     Dates: start: 20050201, end: 20050401
  5. NAVELBINE [Concomitant]
     Dates: start: 20050501, end: 20060101

REACTIONS (7)
  - BONE DISORDER [None]
  - CELLULITIS [None]
  - ENDODONTIC PROCEDURE [None]
  - INFECTION [None]
  - INFLAMMATION [None]
  - OSTEONECROSIS [None]
  - PAIN [None]
